FAERS Safety Report 4757803-3 (Version None)
Quarter: 2005Q3

REPORT INFORMATION
  Report Type: 
  Country: None (occurrence: None)
  Receive Date: 20050831
  Receipt Date: 20050712
  Transmission Date: 20060218
  Serious: Yes (Disabling)
  Sender: FDA-Public Use
  Company Number: 200516378GDDC

PATIENT
  Age: 39 Year
  Sex: Male

DRUGS (2)
  1. RIFADIN [Suspect]
     Indication: TUBERCULOSIS
     Route: 048
     Dates: start: 20050512, end: 20050712
  2. ENGERIX-B [Concomitant]
     Route: 030
     Dates: start: 20050517, end: 20050517

REACTIONS (2)
  - DEAFNESS [None]
  - OTOTOXICITY [None]
